FAERS Safety Report 7959154-2 (Version None)
Quarter: 2011Q4

REPORT INFORMATION
  Report Type: 
  Country: None (occurrence: None)
  Receive Date: 20111130
  Receipt Date: 20111122
  Transmission Date: 20120403
  Serious: Yes (Other)
  Sender: FDA-Public Use
  Company Number: ACO_28057_2011

PATIENT
  Age: 39 Year
  Sex: Female

DRUGS (4)
  1. BACLOFEN [Concomitant]
  2. AMPYRA [Suspect]
     Indication: GAIT DISTURBANCE
     Dosage: ORAL
     Route: 048
     Dates: start: 20101201, end: 20111026
  3. NALTREXONE HYDROCHLORIDE [Concomitant]
  4. LIPITOR [Concomitant]

REACTIONS (4)
  - CONFUSIONAL STATE [None]
  - HAEMATURIA [None]
  - HYPERVENTILATION [None]
  - CONVULSION [None]
